FAERS Safety Report 13049499 (Version 1)
Quarter: 2016Q4

REPORT INFORMATION
  Report Type: Spontaneous
  Country: FR (occurrence: FR)
  Receive Date: 20161221
  Receipt Date: 20161221
  Transmission Date: 20170207
  Serious: Yes (Life-Threatening, Hospitalization)
  Sender: FDA-Public Use
  Company Number: FR-PFIZER INC-2016584001

PATIENT
  Age: 41 Year
  Sex: Male
  Weight: 104.5 kg

DRUGS (4)
  1. DEXAMETHASONE PHOSPHATE SODIUM [Concomitant]
     Active Substance: DEXAMETHASONE SODIUM PHOSPHATE
     Dosage: UNK
  2. OXALIPLATIN. [Suspect]
     Active Substance: OXALIPLATIN
     Indication: HODGKIN^S DISEASE NODULAR SCLEROSIS STAGE I
     Dosage: 220 MG, SINGLE
     Route: 042
     Dates: start: 20160404, end: 20160404
  3. CYTARABINE SANDOZ [Suspect]
     Active Substance: CYTARABINE
     Indication: HODGKIN^S DISEASE NODULAR SCLEROSIS STAGE I
     Dosage: 4400 MG, 1X/DAY
     Route: 042
     Dates: start: 20160404, end: 20160405
  4. ZELITREX [Concomitant]
     Active Substance: VALACYCLOVIR HYDROCHLORIDE
     Dosage: 0.25 DF, 1X/DAY
     Route: 048

REACTIONS (7)
  - Abdominal pain [Recovered/Resolved]
  - Hyperthermia [Recovered/Resolved]
  - Chest discomfort [Recovered/Resolved]
  - Rash erythematous [Unknown]
  - Pruritus [Recovered/Resolved]
  - Wheezing [Recovered/Resolved]
  - Anaphylactic reaction [Recovered/Resolved]

NARRATIVE: CASE EVENT DATE: 20160404
